FAERS Safety Report 14682283 (Version 1)
Quarter: 2018Q1

REPORT INFORMATION
  Report Type: Spontaneous
  Country: US (occurrence: US)
  Receive Date: 20180326
  Receipt Date: 20180326
  Transmission Date: 20180509
  Serious: No
  Sender: FDA-Public Use
  Company Number: US-SUNOVION-2018SUN001038

PATIENT
  Sex: Female

DRUGS (3)
  1. LEVALBUTEROL TARTRATE. [Suspect]
     Active Substance: LEVALBUTEROL TARTRATE
     Dosage: DOSAGE UNK, UNK (DIFFERENT LOT #)
     Route: 055
  2. LEVALBUTEROL TARTRATE. [Suspect]
     Active Substance: LEVALBUTEROL TARTRATE
     Dosage: DOSAGE UNK, UNK (DIFFERENT LOT #)
     Route: 055
  3. LEVALBUTEROL TARTRATE. [Suspect]
     Active Substance: LEVALBUTEROL TARTRATE
     Dosage: DOSAGE UNK, UNK (OPENED NEW UNIT, LOT # NOT PROVIDED)

REACTIONS (1)
  - Drug ineffective [Unknown]
